FAERS Safety Report 14130644 (Version 4)
Quarter: 2018Q3

REPORT INFORMATION
  Report Type: Report from Study
  Country: US (occurrence: US)
  Receive Date: 20171026
  Receipt Date: 20180719
  Transmission Date: 20181010
  Serious: No
  Sender: FDA-Public Use
  Company Number: US-AMGEN-USASL2017139350

PATIENT
  Age: 70 Year
  Sex: Female

DRUGS (2)
  1. REPATHA [Suspect]
     Active Substance: EVOLOCUMAB
     Indication: HYPERCHOLESTEROLAEMIA
  2. REPATHA [Suspect]
     Active Substance: EVOLOCUMAB
     Indication: BLOOD CHOLESTEROL INCREASED
     Dosage: 140 MG, Q2WK
     Route: 065
     Dates: start: 20170908

REACTIONS (16)
  - Weight decreased [Unknown]
  - Rhinorrhoea [Unknown]
  - Diarrhoea [Unknown]
  - Burning sensation [Not Recovered/Not Resolved]
  - Constipation [Unknown]
  - Headache [Not Recovered/Not Resolved]
  - Abdominal pain [Not Recovered/Not Resolved]
  - Nausea [Not Recovered/Not Resolved]
  - Dyspepsia [Unknown]
  - Abdominal distension [Unknown]
  - Abdominal pain upper [Not Recovered/Not Resolved]
  - Feeling hot [Unknown]
  - Hot flush [Not Recovered/Not Resolved]
  - Adverse event [Unknown]
  - Insomnia [Not Recovered/Not Resolved]
  - Abdominal discomfort [Unknown]

NARRATIVE: CASE EVENT DATE: 201709
